FAERS Safety Report 9112335 (Version 1)
Quarter: 2013Q1

REPORT INFORMATION
  Report Type: Spontaneous
  Country: US (occurrence: US)
  Receive Date: 20130219
  Receipt Date: 20130219
  Transmission Date: 20140127
  Serious: No
  Sender: FDA-Public Use
  Company Number: US-BRISTOL-MYERS SQUIBB COMPANY-16410789

PATIENT
  Age: 60 Year
  Sex: Female

DRUGS (1)
  1. ORENCIA FOR INJ [Suspect]
     Indication: RHEUMATOID ARTHRITIS
     Dosage: RECEIVED 6 DOSES,A MONTH OFF,INTERRUPTED,RESTARTED INJECTIONS LAST NIGHT(20-FEB-2012)
     Route: 058

REACTIONS (1)
  - Injection site reaction [Unknown]
